FAERS Safety Report 7973474-7 (Version None)
Quarter: 2011Q4

REPORT INFORMATION
  Report Type: 
  Country: None (occurrence: None)
  Receive Date: 20111213
  Receipt Date: 20111201
  Transmission Date: 20120403
  Serious: Yes (Other)
  Sender: FDA-Public Use
  Company Number: US-JNJFOC-20111201314

PATIENT
  Sex: Female
  Weight: 108.86 kg

DRUGS (12)
  1. PAROXETINE HCL [Concomitant]
     Indication: BIPOLAR DISORDER
     Route: 048
  2. ENALAPRIL MALEATE [Concomitant]
     Indication: HYPERTENSION
     Route: 048
  3. ENALAPRIL MALEATE [Concomitant]
     Route: 048
  4. ACETAMINOPHEN [Concomitant]
     Indication: PREMEDICATION
     Route: 048
  5. HYDROCODONE BITARTRATE AND ACETAMINOPHEN [Concomitant]
     Indication: PAIN
     Dosage: 10MG/500MG
     Route: 048
  6. ROPINIROLE [Concomitant]
     Indication: RESTLESS LEGS SYNDROME
     Route: 048
  7. REMICADE [Suspect]
     Indication: RHEUMATOID ARTHRITIS
     Route: 042
     Dates: start: 20110601, end: 20111130
  8. BENADRYL [Concomitant]
     Indication: PREMEDICATION
  9. LEVOTHYROXINE SODIUM [Concomitant]
     Indication: HYPOTHYROIDISM
     Route: 048
  10. LANSOPRAZOLE [Concomitant]
     Indication: GASTROOESOPHAGEAL REFLUX DISEASE
     Route: 048
  11. MORPHINE [Concomitant]
     Indication: PAIN
     Route: 048
  12. PRAVASTATIN SODIUM [Concomitant]
     Indication: BLOOD CHOLESTEROL INCREASED
     Route: 048

REACTIONS (8)
  - PRURITUS [None]
  - URTICARIA [None]
  - ABASIA [None]
  - PANIC ATTACK [None]
  - FALL [None]
  - ASTHENIA [None]
  - INFUSION RELATED REACTION [None]
  - IMMOBILE [None]
